FAERS Safety Report 16456324 (Version 3)
Quarter: 2019Q3

REPORT INFORMATION
  Report Type: Spontaneous
  Country: US (occurrence: US)
  Receive Date: 20190620
  Receipt Date: 20190902
  Transmission Date: 20191004
  Serious: Yes (Other)
  Sender: FDA-Public Use
  Company Number: US-PFIZER INC-2019258475

PATIENT
  Age: 73 Year
  Sex: Male

DRUGS (1)
  1. XANAX [Suspect]
     Active Substance: ALPRAZOLAM
     Indication: INSOMNIA
     Dosage: UNK; AT 4 HOUR INTERVALS (ALSO REPORTED DOSING TIME WAS BETWEEN 4 AND 6 HOURS)

REACTIONS (6)
  - Drug dependence [Unknown]
  - Intentional product misuse [Unknown]
  - Hypersensitivity [Unknown]
  - Withdrawal syndrome [Unknown]
  - Drug ineffective for unapproved indication [Unknown]
  - Off label use [Unknown]
